FAERS Safety Report 7689046-8 (Version None)
Quarter: 2011Q3

REPORT INFORMATION
  Report Type: 
  Country: None (occurrence: None)
  Receive Date: 20110817
  Receipt Date: 20110815
  Transmission Date: 20111222
  Serious: No
  Sender: FDA-Public Use
  Company Number: US-PFIZER INC-2011187553

PATIENT
  Sex: Male
  Weight: 81.633 kg

DRUGS (5)
  1. EFFEXOR XR [Suspect]
     Dosage: 225 MG (150MG AND 75MG SPLIT DOSES), DAILY
  2. GLUCOSAMINE HYDROCHLORIDE/CHONDROITIN SULFATE [Concomitant]
     Dosage: UNK
  3. EFFEXOR XR [Suspect]
     Dosage: UNK
  4. MULTI-VITAMINS [Concomitant]
     Dosage: UNK, DAILY
     Route: 048
  5. EFFEXOR XR [Suspect]
     Indication: SOCIAL PHOBIA
     Dosage: 75 MG, 1X/DAY
     Dates: start: 20080101

REACTIONS (1)
  - DRUG SCREEN POSITIVE [None]
